FAERS Safety Report 4388209-7 (Version None)
Quarter: 2004Q2

REPORT INFORMATION
  Report Type: 
  Country: None (occurrence: None)
  Receive Date: 20040629
  Receipt Date: 20040629
  Transmission Date: 20050107
  Serious: Yes (Other)
  Sender: FDA-Public Use
  Company Number: None

PATIENT
  Age: 58 Year
  Sex: Male
  Weight: 143.3367 kg

DRUGS (1)
  1. COREG [Suspect]
     Indication: HYPERTENSION
     Dosage: 6.25 MG -BID-PO
     Route: 048

REACTIONS (3)
  - FAECES DISCOLOURED [None]
  - JAUNDICE [None]
  - LIVER FUNCTION TEST ABNORMAL [None]
